FAERS Safety Report 13856388 (Version 3)
Quarter: 2017Q3

REPORT INFORMATION
  Report Type: Spontaneous
  Country: US (occurrence: US)
  Receive Date: 20170810
  Receipt Date: 20170926
  Transmission Date: 20171127
  Serious: No
  Sender: FDA-Public Use
  Company Number: US-B.I. PHARMACEUTICALS,INC./RIDGEFIELD-2017-BI-043722

PATIENT
  Age: 67 Year
  Sex: Female

DRUGS (1)
  1. MICARDIS HCT [Suspect]
     Active Substance: HYDROCHLOROTHIAZIDE\TELMISARTAN
     Indication: HYPERTENSION
     Dosage: FORM STRENGTH: 80 MG / 25 MG
     Route: 048
     Dates: start: 2010

REACTIONS (2)
  - Frustration tolerance decreased [Not Recovered/Not Resolved]
  - Packaging design issue [Unknown]

NARRATIVE: CASE EVENT DATE: 201708
